FAERS Safety Report 5032313-7 (Version None)
Quarter: 2006Q2

REPORT INFORMATION
  Report Type: 
  Country: None (occurrence: None)
  Receive Date: 20060508
  Receipt Date: 20051114
  Transmission Date: 20061013
  Serious: Yes (Hospitalization)
  Sender: FDA-Public Use
  Company Number: USA020110672

PATIENT
  Age: 35 Year
  Sex: Female
  Weight: 106.4 kg

DRUGS (6)
  1. PROZAC [Suspect]
     Indication: DEPRESSION
     Dosage: SEE IMAGE
     Route: 048
     Dates: start: 19900101, end: 19990101
  2. PROZAC [Suspect]
     Indication: DEPRESSION
     Dosage: SEE IMAGE
     Route: 048
     Dates: start: 20010601, end: 20010101
  3. PROZAC [Suspect]
     Indication: DEPRESSION
     Dosage: SEE IMAGE
     Route: 048
     Dates: start: 20011001
  4. XANAX /USA/ (ALPRAZOLAM) [Concomitant]
  5. PAROXETINE [Concomitant]
  6. FLUOXETINE [Concomitant]

REACTIONS (10)
  - ANXIETY [None]
  - CONFUSIONAL STATE [None]
  - DEPRESSION [None]
  - INSOMNIA [None]
  - LOSS OF EMPLOYMENT [None]
  - MANIA [None]
  - PARTNER STRESS [None]
  - RASH [None]
  - SUICIDAL IDEATION [None]
  - SUICIDE ATTEMPT [None]
